FAERS Safety Report 8321631-2 (Version None)
Quarter: 2012Q2

REPORT INFORMATION
  Report Type: 
  Country: None (occurrence: None)
  Receive Date: 20120430
  Receipt Date: 20091022
  Transmission Date: 20120825
  Serious: No
  Sender: FDA-Public Use
  Company Number: US-TEVA-2009011805

PATIENT
  Sex: Female
  Weight: 108.96 kg

DRUGS (18)
  1. SINGULAIR [Concomitant]
     Dates: start: 19790101
  2. TYLENOL (CAPLET) [Concomitant]
     Dates: start: 19990101
  3. ACIPHEX [Concomitant]
     Dates: start: 20040101
  4. PAROXETINE [Concomitant]
     Dates: start: 20090901
  5. ASPIRIN [Concomitant]
  6. BENAZEPRIL HYDROCHLORIDE [Concomitant]
     Dates: start: 19890101
  7. NUVIGIL [Suspect]
     Indication: SLEEP APNOEA SYNDROME
     Dosage: 150 MILLIGRAM;
     Route: 048
     Dates: start: 20091022
  8. NUVIGIL [Suspect]
     Indication: NERVOUS SYSTEM DISORDER
  9. NUVIGIL [Suspect]
     Indication: NARCOLEPSY
  10. CARVEDILOL [Concomitant]
     Dates: start: 19890101
  11. VITAMIN TAB [Concomitant]
  12. ALBUTEROL [Concomitant]
     Dates: start: 20090901
  13. AMBIEN [Concomitant]
  14. XANAX [Concomitant]
  15. ADVAIR DISKUS 100/50 [Concomitant]
  16. PATANASE [Concomitant]
     Dates: start: 20070101
  17. NASACORT [Concomitant]
     Dates: start: 20070101
  18. ESTRADIOL [Concomitant]
     Dates: start: 20090701

REACTIONS (1)
  - DRUG INEFFECTIVE [None]
